FAERS Safety Report 8229561-1 (Version None)
Quarter: 2012Q1

REPORT INFORMATION
  Report Type: 
  Country: None (occurrence: None)
  Receive Date: 20120322
  Receipt Date: 20120319
  Transmission Date: 20120608
  Serious: Yes (Death, Hospitalization, Other)
  Sender: FDA-Public Use
  Company Number: BR-ABBOTT-12P-020-0916891-00

PATIENT
  Sex: Female
  Weight: 38 kg

DRUGS (5)
  1. INSULIN [Concomitant]
     Indication: PRODUCT USED FOR UNKNOWN INDICATION
  2. DIPYRONE INJ [Concomitant]
     Indication: PAIN
  3. GLYBURIDE [Concomitant]
     Indication: DIABETES MELLITUS
     Dosage: 2 TABS/DAY
  4. HUMIRA [Suspect]
     Indication: RHEUMATOID ARTHRITIS
     Route: 058
     Dates: start: 20101101
  5. DORFLEX [Concomitant]
     Indication: PAIN

REACTIONS (11)
  - DIABETES MELLITUS [None]
  - COMA [None]
  - BLINDNESS [None]
  - PAIN [None]
  - SENSORY LOSS [None]
  - HYPOPHAGIA [None]
  - AMNESIA [None]
  - ANAEMIA [None]
  - BLOOD GLUCOSE DECREASED [None]
  - WEIGHT DECREASED [None]
  - DEAFNESS [None]
